FAERS Safety Report 13207507 (Version 5)
Quarter: 2018Q2

REPORT INFORMATION
  Report Type: Spontaneous
  Country: US (occurrence: US)
  Receive Date: 20170209
  Receipt Date: 20180423
  Transmission Date: 20180711
  Serious: Yes (Other)
  Sender: FDA-Public Use
  Company Number: US-SA-2017SA005149

PATIENT
  Age: 70 Year
  Sex: Female

DRUGS (6)
  1. ALIROCUMAB PREFILLED PEN [Suspect]
     Active Substance: ALIROCUMAB
     Indication: HYPERLIPIDAEMIA
     Dates: start: 20180114
  2. ALIROCUMAB PREFILLED PEN [Suspect]
     Active Substance: ALIROCUMAB
     Indication: HYPERLIPIDAEMIA
     Dates: start: 20160831
  3. ALIROCUMAB PREFILLED PEN [Suspect]
     Active Substance: ALIROCUMAB
     Indication: HYPERLIPIDAEMIA
     Dates: start: 201608
  4. PRALUENT [Suspect]
     Active Substance: ALIROCUMAB
     Indication: HYPERLIPIDAEMIA
     Route: 058
     Dates: start: 20180114
  5. PRALUENT [Suspect]
     Active Substance: ALIROCUMAB
     Indication: HYPERLIPIDAEMIA
     Route: 058
     Dates: start: 20160831
  6. PRALUENT [Suspect]
     Active Substance: ALIROCUMAB
     Indication: HYPERLIPIDAEMIA
     Route: 058
     Dates: start: 201608

REACTIONS (11)
  - Blood pressure increased [Unknown]
  - Trichorrhexis [Recovering/Resolving]
  - Pharyngitis [Unknown]
  - Thyroid hormones decreased [Unknown]
  - Anxiety [Recovered/Resolved]
  - Alopecia [Unknown]
  - Glycosylated haemoglobin increased [Unknown]
  - Dysphonia [Unknown]
  - Lower limb fracture [Unknown]
  - Fall [Unknown]
  - Dry skin [Unknown]

NARRATIVE: CASE EVENT DATE: 201609
